FAERS Safety Report 17269674 (Version 5)
Quarter: 2022Q3

REPORT INFORMATION
  Report Type: Report from Study
  Country: DE (occurrence: DE)
  Receive Date: 20200114
  Receipt Date: 20220901
  Transmission Date: 20221026
  Serious: Yes (Hospitalization, Other)
  Sender: FDA-Public Use
  Company Number: DE-SHIRE-DE202000711

PATIENT
  Sex: Male
  Weight: 49 kg

DRUGS (29)
  1. TEDUGLUTIDE [Suspect]
     Active Substance: TEDUGLUTIDE
     Indication: Short-bowel syndrome
     Dosage: UNK
     Route: 042
     Dates: start: 20151030
  2. TEDUGLUTIDE [Suspect]
     Active Substance: TEDUGLUTIDE
     Indication: Short-bowel syndrome
     Dosage: UNK
     Route: 042
     Dates: start: 20151030
  3. TEDUGLUTIDE [Suspect]
     Active Substance: TEDUGLUTIDE
     Indication: Short-bowel syndrome
     Dosage: UNK
     Route: 042
     Dates: start: 20151030
  4. TEDUGLUTIDE [Suspect]
     Active Substance: TEDUGLUTIDE
     Indication: Short-bowel syndrome
     Dosage: UNK
     Route: 042
     Dates: start: 20151030
  5. TEDUGLUTIDE [Suspect]
     Active Substance: TEDUGLUTIDE
     Dosage: 2.4 MILLIGRAM, QD
     Route: 042
     Dates: start: 20160725, end: 20170228
  6. TEDUGLUTIDE [Suspect]
     Active Substance: TEDUGLUTIDE
     Dosage: 2.4 MILLIGRAM, QD
     Route: 042
     Dates: start: 20160725, end: 20170228
  7. TEDUGLUTIDE [Suspect]
     Active Substance: TEDUGLUTIDE
     Dosage: 2.4 MILLIGRAM, QD
     Route: 042
     Dates: start: 20160725, end: 20170228
  8. TEDUGLUTIDE [Suspect]
     Active Substance: TEDUGLUTIDE
     Dosage: 2.4 MILLIGRAM, QD
     Route: 042
     Dates: start: 20160725, end: 20170228
  9. TEDUGLUTIDE [Suspect]
     Active Substance: TEDUGLUTIDE
     Dosage: 2.4 MILLIGRAM, 3/WEEK
     Route: 042
     Dates: start: 20170301, end: 20170602
  10. TEDUGLUTIDE [Suspect]
     Active Substance: TEDUGLUTIDE
     Dosage: 2.4 MILLIGRAM, 3/WEEK
     Route: 042
     Dates: start: 20170301, end: 20170602
  11. TEDUGLUTIDE [Suspect]
     Active Substance: TEDUGLUTIDE
     Dosage: 2.4 MILLIGRAM, 3/WEEK
     Route: 042
     Dates: start: 20170301, end: 20170602
  12. TEDUGLUTIDE [Suspect]
     Active Substance: TEDUGLUTIDE
     Dosage: 2.4 MILLIGRAM, 3/WEEK
     Route: 042
     Dates: start: 20170301, end: 20170602
  13. TEDUGLUTIDE [Suspect]
     Active Substance: TEDUGLUTIDE
     Dosage: 2.6 MILLIGRAM, QD
     Route: 042
     Dates: start: 20200805
  14. TEDUGLUTIDE [Suspect]
     Active Substance: TEDUGLUTIDE
     Dosage: 2.6 MILLIGRAM, QD
     Route: 042
     Dates: start: 20200805
  15. TEDUGLUTIDE [Suspect]
     Active Substance: TEDUGLUTIDE
     Dosage: 2.6 MILLIGRAM, QD
     Route: 042
     Dates: start: 20200805
  16. TEDUGLUTIDE [Suspect]
     Active Substance: TEDUGLUTIDE
     Dosage: 2.6 MILLIGRAM, QD
     Route: 042
     Dates: start: 20200805
  17. REMICADE [Concomitant]
     Active Substance: INFLIXIMAB
     Indication: Crohn^s disease
     Dosage: 200 MILLIGRAM, MONTHLY
     Route: 042
     Dates: start: 2016
  18. METHADONE [Concomitant]
     Active Substance: METHADONE HYDROCHLORIDE
     Indication: Analgesic therapy
     Dosage: 10 DOSAGE FORM, TID
     Route: 048
     Dates: start: 20151010
  19. CIPROFLOXACIN [Concomitant]
     Active Substance: CIPROFLOXACIN
     Indication: Antibiotic prophylaxis
     Dosage: 500 MILLIGRAM, BID
     Route: 048
     Dates: start: 20170626, end: 20170711
  20. METRONIDAZOLE [Concomitant]
     Active Substance: METRONIDAZOLE
     Indication: Prophylaxis
     Dosage: 400 MILLIGRAM, TID
     Route: 048
     Dates: start: 20170626, end: 20170711
  21. STELARA [Concomitant]
     Active Substance: USTEKINUMAB
     Indication: Crohn^s disease
     Dosage: 90 MILLIGRAM
     Route: 058
     Dates: start: 20170724, end: 20190927
  22. PANTOZOL [Concomitant]
     Active Substance: PANTOPRAZOLE SODIUM
     Dosage: 20 MILLIGRAM, QD
     Route: 048
     Dates: end: 202007
  23. THIAMINE HYDROCHLORIDE [Concomitant]
     Active Substance: THIAMINE HYDROCHLORIDE
     Dosage: UNK UNK, QD
     Route: 048
  24. FERINJECT [Concomitant]
     Active Substance: FERRIC CARBOXYMALTOSE
     Dosage: 999 MILLIGRAM
     Route: 042
  25. VITAMIN B12 [Concomitant]
     Active Substance: CYANOCOBALAMIN
     Dosage: UNK UNK, MONTHLY
     Route: 058
  26. DROPIZOL [Concomitant]
     Indication: Pain
     Dosage: 10 MILLIGRAM, BID
     Route: 048
     Dates: start: 2020
  27. LEVOMETHADONE [Concomitant]
     Active Substance: LEVOMETHADONE
     Indication: Pain
     Dosage: 5 MILLIGRAM, TID
     Route: 048
     Dates: start: 2020
  28. REMICADE [Concomitant]
     Active Substance: INFLIXIMAB
     Indication: Short-bowel syndrome
     Dosage: 100 MILLIGRAM
     Route: 042
     Dates: start: 20210215, end: 20210301
  29. INFLIXIMAB [Concomitant]
     Active Substance: INFLIXIMAB
     Indication: Short-bowel syndrome
     Dosage: 120 MILLIGRAM
     Route: 058
     Dates: start: 20210331

REACTIONS (2)
  - Crohn^s disease [Not Recovered/Not Resolved]
  - Constipation [Not Recovered/Not Resolved]

NARRATIVE: CASE EVENT DATE: 20170201
